FAERS Safety Report 6551319-X (Version None)
Quarter: 2010Q1

REPORT INFORMATION
  Report Type: 
  Country: None (occurrence: None)
  Receive Date: 20100126
  Receipt Date: 20100118
  Transmission Date: 20100710
  Serious: Yes (Other)
  Sender: FDA-Public Use
  Company Number: US-RB-001355-10

PATIENT
  Age: 75 Year
  Sex: Male

DRUGS (3)
  1. MUCINEX [Suspect]
     Route: 048
     Dates: end: 20100101
  2. MUCINEX [Suspect]
     Indication: THROAT IRRITATION
     Route: 048
     Dates: end: 20100101
  3. MUCINEX MAX STRENGTH UNSPECIFIED [Suspect]
     Route: 048

REACTIONS (2)
  - INCORRECT DRUG ADMINISTRATION DURATION [None]
  - THROMBOSIS [None]
